FAERS Safety Report 21508335 (Version 1)
Quarter: 2022Q4

REPORT INFORMATION
  Report Type: Spontaneous
  Country: US (occurrence: None)
  Receive Date: 20221025
  Receipt Date: 20221025
  Transmission Date: 20230112
  Serious: Yes (Hospitalization)
  Sender: FDA-Public Use
  Company Number: None

PATIENT
  Sex: Female

DRUGS (1)
  1. ICATIBANT ACETATE [Suspect]
     Active Substance: ICATIBANT ACETATE
     Indication: Complement deficiency disease
     Dosage: FREQUENCY : AS NEEDED;?
     Route: 058
     Dates: start: 20210820

REACTIONS (7)
  - Weight decreased [None]
  - Feeding disorder [None]
  - Malaise [None]
  - Central nervous system infection [None]
  - COVID-19 [None]
  - Haematemesis [None]
  - Crying [None]
